FAERS Safety Report 5443319-8 (Version None)
Quarter: 2007Q3

REPORT INFORMATION
  Report Type: 
  Country: None (occurrence: None)
  Receive Date: 20070831
  Receipt Date: 20070831
  Transmission Date: 20080115
  Serious: Yes (Hospitalization)
  Sender: FDA-Public Use
  Company Number: None

PATIENT
  Sex: Female
  Weight: 81.8 kg

DRUGS (3)
  1. CYTARABINE [Suspect]
     Dosage: 14870 MG
  2. MITOXANTRONE HCL [Suspect]
     Dosage: 88 MG
  3. AMPHOTERICIN B [Concomitant]

REACTIONS (22)
  - ACUTE RESPIRATORY FAILURE [None]
  - C-REACTIVE PROTEIN INCREASED [None]
  - CARDIAC ARREST [None]
  - CARDIOVASCULAR DISORDER [None]
  - CHOLESTASIS [None]
  - ENTEROCOCCAL SEPSIS [None]
  - HYPERBILIRUBINAEMIA [None]
  - HYPERGLYCAEMIA [None]
  - HYPERTRIGLYCERIDAEMIA [None]
  - HYPOTENSION [None]
  - NEUTROPENIA [None]
  - OLIGURIA [None]
  - PULMONARY OEDEMA [None]
  - REFUSAL OF TREATMENT BY RELATIVE [None]
  - RENAL FAILURE ACUTE [None]
  - RESPIRATORY MONILIASIS [None]
  - SEPSIS [None]
  - SUPRAVENTRICULAR TACHYCARDIA [None]
  - TACHYCARDIA [None]
  - TORSADE DE POINTES [None]
  - TRICHOSPORON INFECTION [None]
  - VENTRICULAR TACHYCARDIA [None]
